FAERS Safety Report 12147014 (Version 1)
Quarter: 2016Q1

REPORT INFORMATION
  Report Type: Spontaneous
  Country: US (occurrence: US)
  Receive Date: 20160304
  Receipt Date: 20160304
  Transmission Date: 20160526
  Serious: Yes (Hospitalization, Other)
  Sender: FDA-Public Use
  Company Number: US-INDIVIOR LIMITED-RB-078611-2015

PATIENT
  Age: 54 Year
  Sex: Female

DRUGS (5)
  1. SUBOXONE [Suspect]
     Active Substance: BUPRENORPHINE HYDROCHLORIDE\NALOXONE HYDROCHLORIDE
     Dosage: TAKING ANYWHERE FROM 8-24 MG DAILY
     Route: 060
     Dates: start: 201504
  2. SUBOXONE [Suspect]
     Active Substance: BUPRENORPHINE HYDROCHLORIDE\NALOXONE HYDROCHLORIDE
     Indication: DRUG DEPENDENCE
     Dosage: 8 MG, TID
     Route: 060
     Dates: start: 20120309, end: 201210
  3. SUBOXONE [Suspect]
     Active Substance: BUPRENORPHINE HYDROCHLORIDE\NALOXONE HYDROCHLORIDE
     Dosage: 8 MG, TID FOR ABOUT 22 MONTHS
     Route: 060
     Dates: start: 201302, end: 201504
  4. SUBOXONE [Suspect]
     Active Substance: BUPRENORPHINE HYDROCHLORIDE\NALOXONE HYDROCHLORIDE
     Indication: DRUG DEPENDENCE
     Dosage: 8 MG, THREE TIMES A DAY
     Route: 060
     Dates: start: 2010, end: 201202
  5. BUPRENORPHINE GENERIC TAB [Suspect]
     Active Substance: BUPRENORPHINE
     Indication: DRUG DEPENDENCE
     Dosage: 8 MG, THREE TIMES A DAY
     Route: 060
     Dates: start: 201210, end: 201301

REACTIONS (12)
  - Product preparation error [Not Recovered/Not Resolved]
  - Vertebral column mass [Recovered/Resolved]
  - Neck injury [Unknown]
  - Spinal cord injury [Recovered/Resolved]
  - Intentional product misuse [Not Recovered/Not Resolved]
  - Anuria [Recovered/Resolved]
  - Vomiting [Unknown]
  - Road traffic accident [Recovered/Resolved]
  - Procedural pain [Recovered/Resolved]
  - Formication [Not Recovered/Not Resolved]
  - Drug dependence [Recovered/Resolved]
  - Malaise [Unknown]

NARRATIVE: CASE EVENT DATE: 2010
